FAERS Safety Report 5949179-0 (Version None)
Quarter: 2008Q4

REPORT INFORMATION
  Report Type: 
  Country: None (occurrence: None)
  Receive Date: 20081111
  Receipt Date: 20081103
  Transmission Date: 20090506
  Serious: Yes (Other)
  Sender: FDA-Public Use
  Company Number: US-GENENTECH-270910

PATIENT
  Sex: Male

DRUGS (2)
  1. RITUXAN [Suspect]
     Indication: EVANS SYNDROME
     Dosage: 1000 MG, X2
     Route: 042
  2. RITUXAN [Suspect]
     Indication: SYSTEMIC LUPUS ERYTHEMATOSUS

REACTIONS (2)
  - DRUG INEFFECTIVE [None]
  - RENAL IMPAIRMENT [None]
